FAERS Safety Report 4462481-7 (Version None)
Quarter: 2004Q3

REPORT INFORMATION
  Report Type: 
  Country: None (occurrence: None)
  Receive Date: 20040924
  Receipt Date: 20040916
  Transmission Date: 20050211
  Serious: Yes (Hospitalization)
  Sender: FDA-Public Use
  Company Number: HQWYE126420SEP04

PATIENT
  Age: 67 Year
  Sex: Female
  Weight: 53.57 kg

DRUGS (3)
  1. PREMARIN [Suspect]
     Indication: OESTROGEN REPLACEMENT THERAPY
     Dosage: SEE IMAGE, ORAL
     Route: 048
     Dates: start: 19800101, end: 20040201
  2. PREMARIN [Suspect]
     Indication: OESTROGEN REPLACEMENT THERAPY
     Dosage: SEE IMAGE, ORAL
     Route: 048
     Dates: start: 20040821, end: 20040916
  3. CITRACAL (CALCIUM CITRATE) [Concomitant]

REACTIONS (2)
  - ATRIAL FIBRILLATION [None]
  - NAUSEA [None]
